FAERS Safety Report 24956565 (Version 4)
Quarter: 2025Q1

REPORT INFORMATION
  Report Type: Spontaneous
  Country: RU (occurrence: RU)
  Receive Date: 20250211
  Receipt Date: 20250325
  Transmission Date: 20250409
  Serious: Yes (Hospitalization, Other)
  Sender: NOVARTIS
  Company Number: RU-002147023-NVSC2025RU019697

PATIENT
  Age: 73 Year
  Sex: Female

DRUGS (1)
  1. BROLUCIZUMAB [Suspect]
     Active Substance: BROLUCIZUMAB
     Indication: Neovascular age-related macular degeneration
     Route: 031
     Dates: start: 20250117, end: 20250117

REACTIONS (3)
  - Vitritis [Recovering/Resolving]
  - Hypopyon [Recovering/Resolving]
  - Uveitis [Recovering/Resolving]

NARRATIVE: CASE EVENT DATE: 20250117
